FAERS Safety Report 5153995-5 (Version None)
Quarter: 2006Q4

REPORT INFORMATION
  Report Type: 
  Country: None (occurrence: None)
  Receive Date: 20061120
  Receipt Date: 20061117
  Transmission Date: 20070319
  Serious: Yes (Other)
  Sender: FDA-Public Use
  Company Number: US-GLAXOSMITHKLINE-A0627969A

PATIENT
  Age: 43 Year
  Sex: Male

DRUGS (4)
  1. LAMICTAL [Suspect]
     Indication: CONVULSION
     Route: 048
  2. PHENOBARBITAL TAB [Concomitant]
  3. CARBAMAZEPINE [Concomitant]
  4. UNSPECIFIED MEDICATION [Concomitant]

REACTIONS (2)
  - CONFUSIONAL STATE [None]
  - CONVULSION [None]
